FAERS Safety Report 19154458 (Version 2)
Quarter: 2021Q2

REPORT INFORMATION
  Report Type: Report from Study
  Country: CA (occurrence: CA)
  Receive Date: 20210419
  Receipt Date: 20210608
  Transmission Date: 20210717
  Serious: Yes (Other)
  Sender: FDA-Public Use
  Company Number: CA-TAKEDA-2021TUS017316

PATIENT
  Age: 82 Year
  Sex: Male

DRUGS (4)
  1. IXAZOMIB [Suspect]
     Active Substance: IXAZOMIB
     Indication: PLASMA CELL MYELOMA
     Dosage: 4 MILLIGRAM
     Route: 048
     Dates: start: 20210310
  2. IXAZOMIB [Suspect]
     Active Substance: IXAZOMIB
     Dosage: 2.3 MILLIGRAM
     Route: 048
  3. DEXAMETHASONE. [Suspect]
     Active Substance: DEXAMETHASONE
     Indication: PLASMA CELL MYELOMA
     Dosage: UNK
     Route: 065
     Dates: start: 20210310
  4. SENOKOT [Concomitant]
     Active Substance: SENNOSIDES
     Dosage: UNK
     Route: 065

REACTIONS (4)
  - Off label use [Unknown]
  - Neuropathy peripheral [Unknown]
  - Pain in extremity [Not Recovered/Not Resolved]
  - Incontinence [Unknown]
